FAERS Safety Report 6470922-9 (Version None)
Quarter: 2009Q4

REPORT INFORMATION
  Report Type: 
  Country: None (occurrence: None)
  Receive Date: 20091203
  Receipt Date: 20091118
  Transmission Date: 20100525
  Serious: Yes (Death, Hospitalization)
  Sender: FDA-Public Use
  Company Number: GB-GENENTECH-284932

PATIENT

DRUGS (3)
  1. LUCENTIS [Suspect]
     Indication: DRUG USE FOR UNKNOWN INDICATION
     Dosage: UNK
     Route: 031
     Dates: start: 20090126
  2. ZOLADEX [Concomitant]
     Indication: DRUG USE FOR UNKNOWN INDICATION
  3. CASODEX [Concomitant]
     Indication: DRUG USE FOR UNKNOWN INDICATION

REACTIONS (2)
  - ARTERIOSCLEROSIS [None]
  - INTESTINAL ISCHAEMIA [None]
